FAERS Safety Report 6162397-4 (Version None)
Quarter: 2009Q2

REPORT INFORMATION
  Report Type: 
  Country: None (occurrence: None)
  Receive Date: 20090421
  Receipt Date: 20090312
  Transmission Date: 20091009
  Serious: Yes (Other)
  Sender: FDA-Public Use
  Company Number: US-PFIZER INC-2009183610

PATIENT

DRUGS (1)
  1. DETROL LA [Suspect]

REACTIONS (2)
  - DEHYDRATION [None]
  - DRY MOUTH [None]
